FAERS Safety Report 4918564-8 (Version None)
Quarter: 2006Q1

REPORT INFORMATION
  Report Type: 
  Country: None (occurrence: None)
  Receive Date: 20060217
  Receipt Date: 20060217
  Transmission Date: 20060701
  Serious: Yes (Other)
  Sender: FDA-Public Use
  Company Number: None

PATIENT
  Sex: Female
  Weight: 94.3482 kg

DRUGS (1)
  1. RISPERDAL [Suspect]
     Indication: DEMENTIA
     Dosage: 0.5MG -2X 0.25 MG TAB- Q HS PO
     Route: 048
     Dates: start: 20050908, end: 20050912

REACTIONS (5)
  - BAND NEUTROPHIL PERCENTAGE DECREASED [None]
  - EOSINOPHILIA [None]
  - MYELODYSPLASTIC SYNDROME [None]
  - NEUTROPHIL PELGER-HUET ANOMALY PRESENT [None]
  - WHITE BLOOD CELL COUNT INCREASED [None]
